FAERS Safety Report 9258794 (Version 1)
Quarter: 2013Q2

REPORT INFORMATION
  Report Type: Spontaneous
  Country: FR (occurrence: FR)
  Receive Date: 20130426
  Receipt Date: 20130426
  Transmission Date: 20140414
  Serious: Yes (Hospitalization, Other)
  Sender: FDA-Public Use
  Company Number: FR-BRISTOL-MYERS SQUIBB COMPANY-18803080

PATIENT
  Age: 85 Year
  Sex: Female

DRUGS (10)
  1. COUMADINE [Suspect]
     Indication: PROPHYLAXIS
     Dosage: INTERRUPTED ON 28JAN2013, RESTAT ON 31JAN2013
     Route: 048
     Dates: start: 20130119
  2. CARDENSIEL [Interacting]
     Indication: HYPERTENSION
     Route: 048
     Dates: end: 20130131
  3. CIFLOX [Suspect]
     Indication: BACTERIAL SEPSIS
     Dosage: 14JAN-27JAN2013,750MG(ORAL)?27JAN-29JAN2013,400MG(IV)
     Route: 048
     Dates: start: 20130114, end: 20130129
  4. CALCIPARINE [Concomitant]
     Dosage: IN THE MORNING AND EVENING
  5. CORDARONE [Concomitant]
     Dosage: 5 OUT 7 DAYS
  6. TOPALGIC LP [Concomitant]
  7. AMLOR [Concomitant]
     Dosage: AT MIDDAY
  8. NORSET [Concomitant]
     Dosage: IN THE EVENING
  9. TRANSIPEG [Concomitant]
  10. LASILIX [Concomitant]
     Dates: start: 20130114

REACTIONS (4)
  - Nephropathy toxic [Recovering/Resolving]
  - International normalised ratio increased [Recovered/Resolved]
  - Overdose [Recovered/Resolved with Sequelae]
  - Drug interaction [Unknown]
